FAERS Safety Report 9928525 (Version 1)
Quarter: 2014Q1

REPORT INFORMATION
  Report Type: Spontaneous
  Country: US (occurrence: None)
  Receive Date: 20140226
  Receipt Date: 20140226
  Transmission Date: 20141002
  Serious: Yes (Hospitalization)
  Sender: FDA-Public Use
  Company Number: None

PATIENT
  Age: 68 Year
  Sex: Female
  Weight: 103.7 kg

DRUGS (1)
  1. 5-FLUOROURACIL (5-FU) [Suspect]

REACTIONS (8)
  - Diarrhoea [None]
  - Small intestinal obstruction [None]
  - Infection [None]
  - Colitis [None]
  - Enteritis [None]
  - Hyponatraemia [None]
  - Hypokalaemia [None]
  - Dehydration [None]
